FAERS Safety Report 6111749-7 (Version None)
Quarter: 2009Q1

REPORT INFORMATION
  Report Type: 
  Country: None (occurrence: None)
  Receive Date: 20090311
  Receipt Date: 20080410
  Transmission Date: 20090719
  Serious: No
  Sender: FDA-Public Use
  Company Number: US-TYCO HEALTHCARE/MALLINCKRODT-T200800675

PATIENT

DRUGS (3)
  1. RESTORIL [Suspect]
     Indication: INSOMNIA
     Dosage: 7.5 MG, ONE EVERY 4-5 NIGHTS
     Route: 048
     Dates: start: 20080221, end: 20080406
  2. XANAX [Concomitant]
     Indication: INSOMNIA
     Dosage: QHS
     Route: 048
     Dates: start: 20080401
  3. DILTIAZEM [Concomitant]
     Indication: BLOOD PRESSURE
     Dosage: 60 MG, 1/2 TAB BID
     Route: 048

REACTIONS (4)
  - ABNORMAL DREAMS [None]
  - BLOOD PRESSURE INCREASED [None]
  - DRUG INEFFECTIVE [None]
  - PALPITATIONS [None]
